FAERS Safety Report 4735400-3 (Version None)
Quarter: 2005Q3

REPORT INFORMATION
  Report Type: 
  Country: None (occurrence: None)
  Receive Date: 20050805
  Receipt Date: 20041027
  Transmission Date: 20060218
  Serious: Yes (Disabling)
  Sender: FDA-Public Use
  Company Number: US-ROCHE-385139

PATIENT
  Age: 18 Year
  Sex: Male
  Weight: 68 kg

DRUGS (1)
  1. ACCUTANE [Suspect]
     Indication: ACNE
     Route: 065
     Dates: start: 20000512, end: 20000623

REACTIONS (31)
  - ANAL FISSURE [None]
  - ANAL ULCER [None]
  - ANXIETY [None]
  - APHTHOUS STOMATITIS [None]
  - COLITIS [None]
  - COLITIS ULCERATIVE [None]
  - CROHN'S DISEASE [None]
  - CYTOMEGALOVIRUS ANTIBODY POSITIVE [None]
  - DEPRESSION [None]
  - EMOTIONAL DISTRESS [None]
  - EPIDIDYMAL ENLARGEMENT [None]
  - FOLLICULITIS [None]
  - GASTRITIS [None]
  - GASTROINTESTINAL DISORDER [None]
  - GLAUCOMA [None]
  - HAEMORRHOIDS [None]
  - HERPES SIMPLEX SEROLOGY POSITIVE [None]
  - INFLAMMATORY BOWEL DISEASE [None]
  - INTERNAL INJURY [None]
  - INTESTINAL HAEMORRHAGE [None]
  - LARYNGITIS [None]
  - MULTI-ORGAN DISORDER [None]
  - NASAL CONGESTION [None]
  - PAINFUL DEFAECATION [None]
  - PYREXIA [None]
  - RASH ERYTHEMATOUS [None]
  - RASH MACULAR [None]
  - RASH PRURITIC [None]
  - RECTAL HAEMORRHAGE [None]
  - TONSILLITIS [None]
  - XEROSIS [None]
